FAERS Safety Report 4584935-5 (Version None)
Quarter: 2005Q1

REPORT INFORMATION
  Report Type: 
  Country: None (occurrence: None)
  Receive Date: 20050217
  Receipt Date: 20041116
  Transmission Date: 20050727
  Serious: No
  Sender: FDA-Public Use
  Company Number: US-GLAXOSMITHKLINE-A0534137A

PATIENT
  Age: 54 Year
  Sex: Female
  Weight: 50 kg

DRUGS (5)
  1. WELLBUTRIN XL [Suspect]
     Indication: DEPRESSION
     Dosage: 450MG PER DAY
     Route: 048
     Dates: start: 20040601
  2. ZOLOFT [Concomitant]
     Route: 048
  3. VALIUM [Concomitant]
     Dosage: 5MG FOUR TIMES PER DAY
  4. TRAZOLAN [Concomitant]
     Dosage: .5MG FOUR TIMES PER DAY
  5. AROMASIN [Concomitant]
     Dosage: 400MG AT NIGHT

REACTIONS (2)
  - DRUG INEFFECTIVE [None]
  - STOOL ANALYSIS ABNORMAL [None]
